FAERS Safety Report 7704795-0 (Version None)
Quarter: 2011Q3

REPORT INFORMATION
  Report Type: 
  Country: None (occurrence: None)
  Receive Date: 20110823
  Receipt Date: 20110816
  Transmission Date: 20111222
  Serious: Yes (Other)
  Sender: FDA-Public Use
  Company Number: US-PFIZER INC-2011084866

PATIENT
  Sex: Female

DRUGS (15)
  1. NEURONTIN [Suspect]
     Indication: NEURALGIA
     Dosage: UNK
     Route: 048
     Dates: start: 20090101
  2. LYRICA [Suspect]
     Dosage: UNK
  3. NORTRIPTYLINE HCL [Suspect]
     Dosage: UNK
  4. TRILEPTAL [Suspect]
     Dosage: UNK
  5. VICODIN [Suspect]
     Dosage: UNK
  6. XANAX [Concomitant]
     Dosage: UNK, AS NEEDED
  7. HYDROCHLOROTHIAZIDE [Concomitant]
     Dosage: UNK
  8. URSO 250 [Concomitant]
     Dosage: UNK
  9. LIDODERM [Suspect]
     Dosage: UNK
  10. ZESTRIL [Concomitant]
     Dosage: UNK
  11. CYMBALTA [Suspect]
     Dosage: UNK
  12. NEURONTIN [Suspect]
     Indication: NEUROPATHY PERIPHERAL
     Dosage: 600 MG, 3X/DAY
     Route: 048
  13. TOPROL-XL [Concomitant]
     Dosage: UNK
  14. COUMADIN [Concomitant]
     Dosage: UNK
  15. CARDURA [Concomitant]
     Dosage: UNK

REACTIONS (8)
  - DRUG INEFFECTIVE [None]
  - BLOOD PRESSURE INCREASED [None]
  - SWELLING [None]
  - CONSTIPATION [None]
  - NEURALGIA [None]
  - PARAESTHESIA [None]
  - MUSCULAR WEAKNESS [None]
  - GASTROINTESTINAL DISORDER [None]
